FAERS Safety Report 16726612 (Version 1)
Quarter: 2019Q3

REPORT INFORMATION
  Report Type: Spontaneous
  Country: US (occurrence: US)
  Receive Date: 20190821
  Receipt Date: 20190821
  Transmission Date: 20191005
  Serious: No
  Sender: FDA-Public Use
  Company Number: US-ROMARKLABS-2018-US-000236

PATIENT
  Age: 35 Year
  Sex: Male

DRUGS (1)
  1. ALINIA [Suspect]
     Active Substance: NITAZOXANIDE
     Indication: GASTROINTESTINAL BACTERIAL OVERGROWTH
     Dosage: 1 TABLET EVERY 12 HOURS
     Route: 048
     Dates: start: 201810

REACTIONS (2)
  - Flushing [Unknown]
  - Feeling hot [Unknown]

NARRATIVE: CASE EVENT DATE: 201810
